FAERS Safety Report 8979222 (Version 1)
Quarter: 2012Q4

REPORT INFORMATION
  Report Type: 
  Country: FR (occurrence: FR)
  Receive Date: 20121221
  Receipt Date: 20121221
  Transmission Date: 20130627
  Serious: Yes (Life-Threatening, Hospitalization)
  Sender: FDA-Public Use
  Company Number: FR-GLAXOSMITHKLINE-B0853922A

PATIENT
  Age: 85 Year
  Sex: Female

DRUGS (11)
  1. ARIXTRA [Suspect]
     Indication: THROMBOSIS PROPHYLAXIS
     Dosage: 2.5MG Per day
     Route: 058
     Dates: start: 20120920, end: 20121001
  2. DOLIPRANE [Concomitant]
  3. LASILIX FAIBLE [Concomitant]
  4. LOXEN [Concomitant]
     Route: 048
  5. PRAVASTATINE [Concomitant]
  6. STRESAM [Concomitant]
  7. PARIET [Concomitant]
     Route: 048
  8. TERCIAN [Concomitant]
  9. IMOVANE [Concomitant]
  10. TRANSIPEG [Concomitant]
  11. BISOPROLOL [Concomitant]
     Route: 048

REACTIONS (7)
  - Haematoma [Recovered/Resolved]
  - Circulatory collapse [Recovered/Resolved]
  - Anaemia [Recovered/Resolved]
  - Renal failure [Unknown]
  - Metabolic acidosis [Unknown]
  - Hyperkalaemia [Unknown]
  - Pleural effusion [Unknown]
